FAERS Safety Report 4743344-6 (Version None)
Quarter: 2005Q3

REPORT INFORMATION
  Report Type: 
  Country: None (occurrence: None)
  Receive Date: 20050809
  Receipt Date: 20050727
  Transmission Date: 20060218
  Serious: Yes (Life-Threatening, Hospitalization)
  Sender: FDA-Public Use
  Company Number: 216292

PATIENT
  Age: 61 Year
  Sex: Male
  Weight: 63.5 kg

DRUGS (7)
  1. AVASTIN [Suspect]
     Indication: COLON CANCER METASTATIC
     Dosage: 325 MG, 1/WEEK, INTRAVENOUS
     Route: 042
     Dates: start: 20050712, end: 20050713
  2. OXALIPLATIN (OXALIPLATIN) [Concomitant]
  3. TYLENOL [Concomitant]
  4. BENADRYL [Concomitant]
  5. DECADRON [Concomitant]
  6. TAGAMET [Concomitant]
  7. MULTIVITAMIN  (MULTIVITAMINS NOS) [Concomitant]

REACTIONS (2)
  - CATHETER SITE HAEMORRHAGE [None]
  - THROMBOCYTOPENIA [None]
